FAERS Safety Report 20703615 (Version 1)
Quarter: 2022Q2

REPORT INFORMATION
  Report Type: Spontaneous
  Country: NZ (occurrence: NZ)
  Receive Date: 20220413
  Receipt Date: 20220413
  Transmission Date: 20220720
  Serious: Yes (Hospitalization)
  Sender: FDA-Public Use
  Company Number: NZ-BRISTOL-MYERS SQUIBB COMPANY-2022-018410

PATIENT
  Age: 46 Year
  Sex: Male

DRUGS (1)
  1. REVLIMID [Suspect]
     Active Substance: LENALIDOMIDE
     Indication: Plasma cell myeloma
     Dosage: DOSE : CURRENT 10 MG, PREVIOUS 10 MG;     FREQ : CURRENT DAILY D1-21, PREVIOUS DAILY D1-21
     Route: 065

REACTIONS (2)
  - Hospitalisation [Unknown]
  - COVID-19 [Unknown]
